FAERS Safety Report 8269526 (Version 4)
Quarter: 2014Q1

REPORT INFORMATION
  Report Type: Spontaneous
  Country: MX (occurrence: CN)
  Receive Date: 20111130
  Receipt Date: 20140311
  Transmission Date: 20141002
  Serious: Yes (Other)
  Sender: FDA-Public Use
  Company Number: CN-PFIZER INC-2011287909

PATIENT
  Age: 37 Year
  Sex: Male

DRUGS (1)
  1. CLINDAMYCIN PHOSPHATE [Suspect]
     Indication: CHOLECYSTECTOMY
     Dosage: 3 G, TWICE DAILY (ALSO REPORTED AS DAILY)
     Route: 041
     Dates: start: 200712, end: 2007

REACTIONS (1)
  - Haemolytic anaemia [Recovered/Resolved]
